FAERS Safety Report 6662377-6 (Version None)
Quarter: 2010Q1

REPORT INFORMATION
  Report Type: 
  Country: None (occurrence: None)
  Receive Date: 20100331
  Receipt Date: 20100323
  Transmission Date: 20100710
  Serious: Yes (Hospitalization)
  Sender: FDA-Public Use
  Company Number: JP-ABBOTT-10P-087-0634489-00

PATIENT
  Age: 27 Year
  Sex: Male

DRUGS (11)
  1. HUMIRA [Suspect]
     Indication: RHEUMATOID ARTHRITIS
     Route: 058
     Dates: start: 20100318
  2. URSODEOXYCHOLIC ACID [Concomitant]
     Indication: DRUG USE FOR UNKNOWN INDICATION
     Dosage: DAILY DOSE:200 MG
     Route: 048
     Dates: start: 20100301
  3. ROXATIDINE ACETATE HCL [Concomitant]
     Indication: DRUG USE FOR UNKNOWN INDICATION
     Dosage: DAILY DOSE 75MG
     Route: 048
     Dates: start: 20100301
  4. CELECOXIB [Concomitant]
     Indication: DRUG USE FOR UNKNOWN INDICATION
     Dosage: DAILY DOSE: 400MG
     Route: 048
     Dates: start: 20100301
  5. METHYLPREDNISOLONE [Concomitant]
     Indication: PROPHYLAXIS
     Dosage: DAILY DOSE: 8MG
     Route: 048
     Dates: start: 20100301
  6. METHYLPREDNISOLONE [Concomitant]
     Indication: ADVERSE DRUG REACTION
  7. EBASTINE [Concomitant]
     Indication: DRUG USE FOR UNKNOWN INDICATION
     Dosage: DAILY DOSE: 10MG
     Route: 048
     Dates: start: 20100315
  8. METHOTREXATE [Concomitant]
     Indication: DRUG USE FOR UNKNOWN INDICATION
     Dosage: 6 MG PER WEEK
     Route: 048
     Dates: start: 20100315
  9. FOLIC ACID [Concomitant]
     Indication: DRUG USE FOR UNKNOWN INDICATION
     Dosage: 5 MG PER WEEK
     Route: 048
     Dates: start: 20100315
  10. PREDNISOLONE [Concomitant]
     Indication: PROPHYLAXIS
     Route: 042
     Dates: start: 20100318
  11. PREDNISOLONE [Concomitant]
     Indication: ADVERSE DRUG REACTION

REACTIONS (6)
  - ASTHENIA [None]
  - DRUG INEFFECTIVE [None]
  - DYSPNOEA [None]
  - LARYNGEAL OEDEMA [None]
  - MOBILITY DECREASED [None]
  - PHARYNGEAL OEDEMA [None]
